FAERS Safety Report 7468042-X (Version None)
Quarter: 2011Q2

REPORT INFORMATION
  Report Type: 
  Country: None (occurrence: None)
  Receive Date: 20110509
  Receipt Date: 20110318
  Transmission Date: 20111010
  Serious: No
  Sender: FDA-Public Use
  Company Number: US-ALEXION-A201100379

PATIENT
  Sex: Female

DRUGS (1)
  1. SOLIRIS [Suspect]
     Indication: PAROXYSMAL NOCTURNAL HAEMOGLOBINURIA
     Dosage: UNK
     Route: 042

REACTIONS (13)
  - MOBILITY DECREASED [None]
  - LIMB DEFORMITY [None]
  - EYE PAIN [None]
  - PYREXIA [None]
  - SENSATION OF FOREIGN BODY [None]
  - HEADACHE [None]
  - FATIGUE [None]
  - BRONCHITIS VIRAL [None]
  - CATHETER SITE HAEMATOMA [None]
  - DYSGEUSIA [None]
  - PAIN IN EXTREMITY [None]
  - CATHETER SITE RASH [None]
  - FEELING ABNORMAL [None]
